FAERS Safety Report 10597294 (Version 1)
Quarter: 2014Q4

REPORT INFORMATION
  Report Type: Spontaneous
  Country: PL (occurrence: PL)
  Receive Date: 20141121
  Receipt Date: 20141121
  Transmission Date: 20150529
  Serious: Yes (Hospitalization)
  Sender: FDA-Public Use
  Company Number: PL-RANBAXY-2014R1-88175

PATIENT
  Age: 65 Year
  Sex: Female

DRUGS (1)
  1. METFORMIN [Suspect]
     Active Substance: METFORMIN HYDROCHLORIDE
     Indication: DIABETES MELLITUS
     Dosage: 850 MG AND 500 MG DOSES
     Route: 065

REACTIONS (8)
  - Metabolic acidosis [Recovering/Resolving]
  - Poisoning [Recovering/Resolving]
  - Self-medication [Recovering/Resolving]
  - Tachycardia [Recovering/Resolving]
  - Hypotension [Recovering/Resolving]
  - Hypocalcaemia [Recovering/Resolving]
  - Renal failure [Recovering/Resolving]
  - Hypertension [Recovering/Resolving]
